FAERS Safety Report 6247267-5 (Version None)
Quarter: 2009Q2

REPORT INFORMATION
  Report Type: 
  Country: None (occurrence: None)
  Receive Date: 20090626
  Receipt Date: 20090617
  Transmission Date: 20091009
  Serious: Yes (Hospitalization)
  Sender: FDA-Public Use
  Company Number: A0743997A

PATIENT
  Age: 44 Year
  Sex: Female
  Weight: 86.4 kg

DRUGS (10)
  1. AVANDIA [Suspect]
     Indication: DIABETES MELLITUS
     Dosage: 4MG TWICE PER DAY
     Route: 048
     Dates: start: 20060619, end: 20070523
  2. PIROXICAM [Concomitant]
  3. COREG [Concomitant]
  4. TRICOR [Concomitant]
  5. ADVAIR HFA [Concomitant]
  6. DOXEPIN HCL [Concomitant]
  7. TRICOR [Concomitant]
  8. LISINOPRIL [Concomitant]
  9. ATIVAN [Concomitant]
  10. OXYCONTIN [Concomitant]

REACTIONS (2)
  - CARDIAC FAILURE CONGESTIVE [None]
  - MYOCARDIAL INFARCTION [None]
